FAERS Safety Report 21023507 (Version 2)
Quarter: 2022Q3

REPORT INFORMATION
  Report Type: Report from Study
  Country: US (occurrence: US)
  Receive Date: 20220629
  Receipt Date: 20220708
  Transmission Date: 20221027
  Serious: Yes (Hospitalization)
  Sender: FDA-Public Use
  Company Number: US-BAYER-2022A086092

PATIENT
  Age: 45 Year
  Sex: Female
  Weight: 127.44 kg

DRUGS (6)
  1. ADEMPAS [Suspect]
     Active Substance: RIOCIGUAT
     Indication: Pulmonary arterial hypertension
     Dosage: UNK
     Dates: start: 20220217
  2. ADEMPAS [Suspect]
     Active Substance: RIOCIGUAT
     Indication: Pulmonary arterial hypertension
     Dosage: 1.5 MG, TID
     Route: 048
     Dates: start: 2022, end: 20220616
  3. OPSUMIT [Concomitant]
     Active Substance: MACITENTAN
     Dosage: UNK
  4. UPTRAVI [Suspect]
     Active Substance: SELEXIPAG
     Indication: Pulmonary arterial hypertension
     Dosage: 400 ?G, BID
     Route: 048
  5. TADALAFIL [Concomitant]
     Active Substance: TADALAFIL
  6. ELIQUIS [Concomitant]
     Active Substance: APIXABAN

REACTIONS (8)
  - Atrial flutter [Not Recovered/Not Resolved]
  - Syncope [None]
  - Abdominal discomfort [None]
  - Headache [None]
  - Myalgia [None]
  - Dyspnoea [None]
  - Fluid retention [None]
  - Breast pain [None]

NARRATIVE: CASE EVENT DATE: 20220101
